FAERS Safety Report 7522337-X (Version None)
Quarter: 2011Q2

REPORT INFORMATION
  Report Type: 
  Country: None (occurrence: None)
  Receive Date: 20110603
  Receipt Date: 20110530
  Transmission Date: 20111010
  Serious: Yes (Death, Hospitalization, Other)
  Sender: FDA-Public Use
  Company Number: PHHY2011BR46979

PATIENT
  Sex: Female

DRUGS (2)
  1. EXELON [Suspect]
     Dosage: 18 MG/10CM^2
     Route: 062
  2. EXELON [Suspect]
     Indication: SENILE DEMENTIA
     Dosage: 9 MG/5CM^2
     Route: 062

REACTIONS (5)
  - BLADDER DISORDER [None]
  - FEMUR FRACTURE [None]
  - MULTI-ORGAN FAILURE [None]
  - PAIN [None]
  - FALL [None]
